FAERS Safety Report 9204888 (Version 1)
Quarter: 2013Q1

REPORT INFORMATION
  Report Type: Spontaneous
  Country: US (occurrence: None)
  Receive Date: 20120709
  Receipt Date: 20120709
  Transmission Date: 20140127
  Serious: Yes (Other)
  Sender: FDA-Public Use
  Company Number: PHEH2011US04344

PATIENT
  Age: 79 Year
  Sex: Male

DRUGS (10)
  1. GLEEVEC (IMATINIB) [Suspect]
     Dosage: (1XDAY)
  2. COREG (CARVEDILOL) [Concomitant]
  3. PROZAC (FLUOXETINE HYDROCHLORIDE) [Concomitant]
  4. ACCUPRIL (QUINAPRIL HYDROCHLORIDE) [Concomitant]
  5. PREVACID (LANSOPRAZOLE) [Concomitant]
  6. LASIX (FUROSEMIDE) [Concomitant]
  7. FLOMAXX (TAMSULOSIN HYDROCHLORIDE [Concomitant]
  8. GLUCOSAMINE CONTRITINE [Concomitant]
  9. VITAMIN C [Concomitant]
  10. OXYCONTIN (OXYCODONE HYDROCHLORIDE) [Concomitant]

REACTIONS (3)
  - Renal impairment [None]
  - Weight decreased [None]
  - White blood cell count decreased [None]
